FAERS Safety Report 24134603 (Version 1)
Quarter: 2024Q3

REPORT INFORMATION
  Report Type: Spontaneous
  Country: NO (occurrence: NO)
  Receive Date: 20240725
  Receipt Date: 20240725
  Transmission Date: 20241017
  Serious: Yes (Hospitalization)
  Sender: NOVO NORDISK
  Company Number: None

PATIENT
  Age: 51 Year
  Sex: Female
  Weight: 56 kg

DRUGS (1)
  1. OZEMPIC [Suspect]
     Active Substance: SEMAGLUTIDE
     Indication: Diabetes mellitus
     Dosage: QW
     Route: 058
     Dates: start: 202008, end: 202406

REACTIONS (3)
  - Raynaud^s phenomenon [Not Recovered/Not Resolved]
  - Back pain [Unknown]
  - Biliary colic [Unknown]

NARRATIVE: CASE EVENT DATE: 20200101
